FAERS Safety Report 19602927 (Version 1)
Quarter: 2021Q3

REPORT INFORMATION
  Report Type: Spontaneous
  Country: US (occurrence: US)
  Receive Date: 20210723
  Receipt Date: 20210723
  Transmission Date: 20211014
  Serious: No
  Sender: FDA-Public Use
  Company Number: US-009507513-2107USA007169

PATIENT
  Sex: Female

DRUGS (2)
  1. LENVATINIB MESYLATE [Suspect]
     Active Substance: LENVATINIB MESYLATE
     Indication: UTERINE CANCER
     Dosage: 14 MILLIGRAM DAILY
     Route: 048
     Dates: start: 20210706
  2. KEYTRUDA [Suspect]
     Active Substance: PEMBROLIZUMAB
     Dosage: UNK
     Dates: start: 2021

REACTIONS (5)
  - Pelvic pain [Unknown]
  - Fatigue [Unknown]
  - Peripheral swelling [Unknown]
  - Malaise [Unknown]
  - Walking aid user [Unknown]

NARRATIVE: CASE EVENT DATE: 202107
